FAERS Safety Report 7486194-2 (Version None)
Quarter: 2011Q2

REPORT INFORMATION
  Report Type: 
  Country: None (occurrence: None)
  Receive Date: 20110517
  Receipt Date: 20110510
  Transmission Date: 20111010
  Serious: Yes (Hospitalization)
  Sender: FDA-Public Use
  Company Number: US-B.I. PHARMACEUTICALS,INC./RIDGEFIELD-2011-BP-12722BP

PATIENT
  Age: 79 Year
  Sex: Female

DRUGS (12)
  1. POTASSIUM [Concomitant]
     Indication: PROPHYLAXIS
  2. MULTAQ [Concomitant]
     Indication: ATRIAL FIBRILLATION
  3. REQUIP [Concomitant]
     Indication: RESTLESS LEGS SYNDROME
  4. NEURONTIN [Concomitant]
     Indication: RESTLESS LEGS SYNDROME
  5. PRADAXA [Suspect]
     Indication: ATRIAL FIBRILLATION
     Dosage: 300 MG
     Route: 048
     Dates: start: 20110502
  6. AGGRENOX [Concomitant]
     Indication: ATRIAL FIBRILLATION
  7. NORVASC [Concomitant]
     Indication: HYPERTENSION
  8. ACCUPRIL [Concomitant]
     Indication: HYPERTENSION
  9. TOPROL-XL [Concomitant]
     Indication: HYPERTENSION
  10. DILTIAZEM [Concomitant]
     Indication: HYPERTENSION
  11. HYDROCHLOROTHIAZIDE [Concomitant]
     Indication: HYPERTENSION
  12. CARDURA [Concomitant]
     Indication: HYPERTENSION

REACTIONS (3)
  - DYSPNOEA [None]
  - HEART RATE DECREASED [None]
  - RESPIRATORY DISORDER [None]
